FAERS Safety Report 6361396-7 (Version None)
Quarter: 2009Q3

REPORT INFORMATION
  Report Type: 
  Country: None (occurrence: None)
  Receive Date: 20090918
  Receipt Date: 20090907
  Transmission Date: 20100115
  Serious: Yes (Other)
  Sender: FDA-Public Use
  Company Number: NL-ELI_LILLY_AND_COMPANY-NL200909001388

PATIENT
  Sex: Male

DRUGS (1)
  1. ZYPREXA [Suspect]
     Indication: SLEEP DISORDER
     Dates: start: 19970101, end: 19980101

REACTIONS (9)
  - ASTHENIA [None]
  - BLOOD GLUCOSE INCREASED [None]
  - DRY EYE [None]
  - IRRITABILITY [None]
  - LISTLESS [None]
  - OFF LABEL USE [None]
  - RENAL IMPAIRMENT [None]
  - STRESS [None]
  - TYPE 2 DIABETES MELLITUS [None]
